FAERS Safety Report 6022227 (Version 2)
Quarter: 2013Q1

REPORT INFORMATION
  Report Type: Report from Study
  Country: NZ (occurrence: NZ)
  Receive Date: 20060410
  Receipt Date: 20130311
  Transmission Date: 20140127
  Serious: Yes (Other)
  Sender: FDA-Public Use
  Company Number: PHBS2006NZ04844

PATIENT
  Sex: Female

DRUGS (1)
  1. CLOZARIL [Suspect]
     Indication: SCHIZOPHRENIA
     Dosage: UNK
     Route: 048
     Dates: start: 20060110, end: 20060313

REACTIONS (3)
  - Renal failure [Unknown]
  - Diabetes insipidus [Not Recovered/Not Resolved]
  - Blood electrolytes increased [Unknown]
